FAERS Safety Report 13190866 (Version 1)
Quarter: 2017Q1

REPORT INFORMATION
  Report Type: Report from Study
  Country: CA (occurrence: CA)
  Receive Date: 20170206
  Receipt Date: 20170206
  Transmission Date: 20170428
  Serious: Yes (Other)
  Sender: FDA-Public Use
  Company Number: CA-REGENERON PHARMACEUTICALS, INC.-2017-10338

PATIENT

DRUGS (1)
  1. EYLEA [Suspect]
     Active Substance: AFLIBERCEPT
     Indication: NEOVASCULAR AGE-RELATED MACULAR DEGENERATION
     Dosage: RECEIVED 3 DOSES IN RIGHT EYE, LAST DOSE OCT-2016
     Route: 031
     Dates: end: 201610

REACTIONS (4)
  - Malaise [Unknown]
  - Drug ineffective [Unknown]
  - Cardiac disorder [Unknown]
  - Blindness unilateral [Unknown]

NARRATIVE: CASE EVENT DATE: 201609
